FAERS Safety Report 13413652 (Version 1)
Quarter: 2017Q2

REPORT INFORMATION
  Report Type: Spontaneous
  Country: ZA (occurrence: ZA)
  Receive Date: 20170407
  Receipt Date: 20170407
  Transmission Date: 20170830
  Serious: Yes (Other)
  Sender: FDA-Public Use
  Company Number: ZA-PFIZER INC-2017115924

PATIENT
  Sex: Female

DRUGS (5)
  1. PERINDAL [Concomitant]
     Dosage: UNK
  2. DISPRIN [Concomitant]
     Active Substance: ASPIRIN
     Dosage: UNK
  3. LIPITOR [Suspect]
     Active Substance: ATORVASTATIN CALCIUM
     Dosage: UNK (FOR THE PAST 11 YEARS)
  4. BILOCOR [Concomitant]
     Active Substance: BISOPROLOL FUMARATE
     Dosage: UNK
  5. ASPAVOR [Suspect]
     Active Substance: ATORVASTATIN
     Dosage: UNK

REACTIONS (2)
  - Spinal disorder [Unknown]
  - Muscle spasms [Not Recovered/Not Resolved]
